FAERS Safety Report 5669939-3 (Version None)
Quarter: 2008Q1

REPORT INFORMATION
  Report Type: 
  Country: None (occurrence: None)
  Receive Date: 20080317
  Receipt Date: 20080310
  Transmission Date: 20080703
  Serious: Yes (Other)
  Sender: FDA-Public Use
  Company Number: JP-PFIZER INC-2008022258

PATIENT
  Sex: Male
  Weight: 56 kg

DRUGS (9)
  1. JZOLOFT [Suspect]
     Indication: DEPRESSION
     Route: 048
     Dates: start: 20071221, end: 20071229
  2. LISINOPRIL [Concomitant]
  3. THYRADIN-S [Concomitant]
  4. LOXOPROFEN SODIUM [Concomitant]
  5. ALEVIATIN [Concomitant]
  6. SENNARIDE [Concomitant]
  7. FENTANYL [Concomitant]
  8. OXINORM [Concomitant]
  9. WYPAX [Concomitant]

REACTIONS (1)
  - MYOCLONUS [None]
